FAERS Safety Report 8734762 (Version 2)
Quarter: 2012Q4

REPORT INFORMATION
  Report Type: 
  Country: US (occurrence: US)
  Receive Date: 20120821
  Receipt Date: 20120925
  Transmission Date: 20130627
  Serious: No
  Sender: FDA-Public Use
  Company Number: US-ASTRAZENECA-2011SE40562

PATIENT
  Sex: Female

DRUGS (4)
  1. SYMBICORT [Suspect]
     Indication: ASTHMA
     Dosage: 160/4.5 MCG 2 PUFFS BID
     Route: 055
     Dates: start: 201103
  2. SYMBICORT [Suspect]
     Indication: ASTHMA
     Dosage: 160/4.5 MCG, 1 PUFF DAILY
     Route: 055
  3. BLOOD PRESSURE MEDICATION [Concomitant]
     Indication: HYPERTENSION
  4. ADVAIR [Concomitant]

REACTIONS (4)
  - Dyspnoea [Unknown]
  - Malaise [Unknown]
  - Insomnia [Not Recovered/Not Resolved]
  - Off label use [Unknown]
